FAERS Safety Report 7649333-6 (Version None)
Quarter: 2011Q3

REPORT INFORMATION
  Report Type: 
  Country: None (occurrence: None)
  Receive Date: 20110726
  Receipt Date: 20110711
  Transmission Date: 20111222
  Serious: Yes (Hospitalization)
  Sender: FDA-Public Use
  Company Number: 2011-2374

PATIENT
  Age: 8 Year
  Sex: Male

DRUGS (1)
  1. INCRELEX [Suspect]
     Indication: BODY HEIGHT BELOW NORMAL
     Dosage: 56 UNITS (56 UNITS,1 IN 1 D), SUBCUTANEOUS
     Route: 058
     Dates: start: 20110602

REACTIONS (3)
  - VOMITING [None]
  - DEHYDRATION [None]
  - GASTROENTERITIS [None]
